FAERS Safety Report 5296542-X (Version None)
Quarter: 2007Q2

REPORT INFORMATION
  Report Type: 
  Country: None (occurrence: None)
  Receive Date: 20070413
  Receipt Date: 20070402
  Transmission Date: 20071010
  Serious: No
  Sender: FDA-Public Use
  Company Number: BR-PFIZER INC-2007026089

PATIENT
  Sex: Female

DRUGS (3)
  1. REVATIO [Suspect]
     Indication: PULMONARY HYPERTENSION
     Route: 048
  2. FORASEQ [Concomitant]
     Route: 055
  3. SPIRIVA [Concomitant]
     Route: 055
     Dates: start: 20040101

REACTIONS (1)
  - NO ADVERSE EFFECT [None]
